FAERS Safety Report 9051997 (Version 2)
Quarter: 2013Q1

REPORT INFORMATION
  Report Type: Spontaneous
  Country: US (occurrence: US)
  Receive Date: 20130207
  Receipt Date: 20130313
  Transmission Date: 20140127
  Serious: Yes (Hospitalization)
  Sender: FDA-Public Use
  Company Number: US-009507513-1302USA002492

PATIENT
  Sex: Male

DRUGS (3)
  1. VICTRELIS [Suspect]
     Indication: HEPATITIS C
     Dosage: 800 MG, TID
     Route: 048
     Dates: start: 20120814
  2. RIBAVIRIN [Suspect]
  3. PEGASYS [Suspect]

REACTIONS (3)
  - Lung infection [Unknown]
  - Sinusitis [Unknown]
  - Haemoglobin decreased [Unknown]
